FAERS Safety Report 11830767 (Version 4)
Quarter: 2016Q1

REPORT INFORMATION
  Report Type: Spontaneous
  Country: US (occurrence: US)
  Receive Date: 20151214
  Receipt Date: 20160219
  Transmission Date: 20160525
  Serious: Yes (Hospitalization, Other)
  Sender: FDA-Public Use
  Company Number: US-UCBSA-2015039814

PATIENT
  Age: 69 Year
  Sex: Female

DRUGS (1)
  1. NEUPRO [Suspect]
     Active Substance: ROTIGOTINE
     Indication: PARKINSON^S DISEASE
     Dosage: 4 MG, UNK
     Dates: start: 20120701, end: 201512

REACTIONS (5)
  - Coma [Recovered/Resolved]
  - Upper limb fracture [Recovering/Resolving]
  - Nephrolithiasis [Recovering/Resolving]
  - Sepsis [Recovered/Resolved]
  - Fall [Recovering/Resolving]

NARRATIVE: CASE EVENT DATE: 201508
